FAERS Safety Report 7550904-6 (Version None)
Quarter: 2011Q2

REPORT INFORMATION
  Report Type: 
  Country: None (occurrence: None)
  Receive Date: 20110616
  Receipt Date: 20110224
  Transmission Date: 20111010
  Serious: No
  Sender: FDA-Public Use
  Company Number: US-MYLANLABS-2011S1003990

PATIENT
  Age: 60 Year
  Sex: Female

DRUGS (6)
  1. DILTIAZEM HCL [Suspect]
     Indication: BLOOD PRESSURE INCREASED
     Route: 048
     Dates: start: 20080101
  2. FOSINOPRIL SODIUM [Suspect]
     Indication: BLOOD PRESSURE INCREASED
  3. VENTOLIN HFA [Concomitant]
  4. PRAZOSIN HCL [Suspect]
     Indication: BLOOD PRESSURE INCREASED
     Route: 048
     Dates: start: 20080101
  5. SINGULAIR [Suspect]
  6. PRAZOSIN HCL [Suspect]
     Route: 048
     Dates: start: 20080101

REACTIONS (2)
  - ABDOMINAL DISCOMFORT [None]
  - REACTION TO DRUG EXCIPIENTS [None]
